FAERS Safety Report 5231211-3 (Version None)
Quarter: 2007Q1

REPORT INFORMATION
  Report Type: 
  Country: None (occurrence: None)
  Receive Date: 20070206
  Receipt Date: 20070130
  Transmission Date: 20070707
  Serious: Yes (Hospitalization)
  Sender: FDA-Public Use
  Company Number: US-JNJFOC-20070107466

PATIENT
  Age: 53 Year
  Sex: Male

DRUGS (10)
  1. CYCLOBENZAPRINE HCL [Suspect]
     Indication: DRUG USE FOR UNKNOWN INDICATION
  2. CYMBALTA [Interacting]
     Indication: PAIN
  3. CYMBALTA [Interacting]
     Indication: DEPRESSION
  4. PREGABALIN [Concomitant]
     Indication: PAIN
  5. PREGABALIN [Concomitant]
     Indication: DEPRESSION
  6. BUPROPION HCL [Concomitant]
     Indication: PAIN
  7. BUPROPION HCL [Concomitant]
     Indication: DEPRESSION
  8. OXYCODONE HCL [Concomitant]
     Indication: PAIN
     Dosage: AS NEEDED
  9. HYDROMORPHONE HCL [Concomitant]
     Indication: PAIN
     Dosage: AS NEEDED
  10. VANCOMYCIN HYDROCHLORIDE [Concomitant]

REACTIONS (2)
  - DRUG INTERACTION [None]
  - SEROTONIN SYNDROME [None]
